FAERS Safety Report 13430294 (Version 1)
Quarter: 2017Q2

REPORT INFORMATION
  Report Type: Spontaneous
  Country: US (occurrence: US)
  Receive Date: 20170411
  Receipt Date: 20170411
  Transmission Date: 20170830
  Serious: Yes (Other)
  Sender: FDA-Public Use
  Company Number: None

PATIENT
  Age: 62 Year
  Sex: Male

DRUGS (2)
  1. CAPECITABINE 500MG ACCORD [Suspect]
     Active Substance: CAPECITABINE
     Indication: PANCREATIC NEUROENDOCRINE TUMOUR
     Dosage: 1000MG BID FOR 14 DAYS ON A 21 DAY CYCLE PO
     Route: 048
     Dates: start: 20170317
  2. TEMOZOLOMIDE. [Suspect]
     Active Substance: TEMOZOLOMIDE
     Indication: PANCREATIC NEUROENDOCRINE TUMOUR
     Dosage: 180MG BID FOR 5 DAYS OF A 21 DAY CYCLE PO
     Route: 048
     Dates: start: 20170317

REACTIONS (3)
  - Myocardial infarction [None]
  - Toxicity to various agents [None]
  - Chest pain [None]

NARRATIVE: CASE EVENT DATE: 20170317
